FAERS Safety Report 19850231 (Version 1)
Quarter: 2021Q3

REPORT INFORMATION
  Report Type: Spontaneous
  Country: US (occurrence: US)
  Receive Date: 20210918
  Receipt Date: 20210918
  Transmission Date: 20211014
  Serious: Yes (Other)
  Sender: FDA-Public Use
  Company Number: US-ACCORD-238249

PATIENT
  Age: 7 Decade
  Sex: Male

DRUGS (2)
  1. DOCETAXEL. [Suspect]
     Active Substance: DOCETAXEL
     Indication: PLEOMORPHIC MALIGNANT FIBROUS HISTIOCYTOMA
  2. GEMCITABINE/GEMCITABINE HYDROCHLORIDE [Suspect]
     Active Substance: GEMCITABINE\GEMCITABINE HYDROCHLORIDE
     Indication: PLEOMORPHIC MALIGNANT FIBROUS HISTIOCYTOMA

REACTIONS (2)
  - Toxicity to various agents [Unknown]
  - Off label use [Unknown]
